FAERS Safety Report 24195798 (Version 1)
Quarter: 2024Q3

REPORT INFORMATION
  Report Type: Spontaneous
  Country: FR (occurrence: None)
  Receive Date: 20240809
  Receipt Date: 20240809
  Transmission Date: 20241016
  Serious: Yes (Other)
  Sender: ASTRAZENECA
  Company Number: 2024A181105

PATIENT
  Age: 50 Year
  Sex: Male
  Weight: 64 kg

DRUGS (6)
  1. QUETIAPINE [Interacting]
     Active Substance: QUETIAPINE
     Indication: Product used for unknown indication
     Dosage: 50 MG: 2 IN THE EVENING; GRADUALLY REDUCED TO ONE
     Route: 048
  2. CENOBAMATE [Interacting]
     Active Substance: CENOBAMATE
     Indication: Epilepsy
     Dosage: EVENING
     Route: 048
  3. CLOBAZAM [Interacting]
     Active Substance: CLOBAZAM
     Indication: Epilepsy
     Dosage: IN THE EVENING
     Route: 048
  4. SERTRALINE HYDROCHLORIDE [Concomitant]
     Active Substance: SERTRALINE HYDROCHLORIDE
     Dosage: MORNING AND EVENINGS
  5. BRIVIACT [Concomitant]
     Active Substance: BRIVARACETAM
     Dosage: MORNING AND EVENING
  6. VIMPAT [Concomitant]
     Active Substance: LACOSAMIDE

REACTIONS (5)
  - Asthenia [Not Recovered/Not Resolved]
  - Erectile dysfunction [Not Recovered/Not Resolved]
  - Drug interaction [Not Recovered/Not Resolved]
  - Tremor [Not Recovered/Not Resolved]
  - Sedation [Not Recovered/Not Resolved]

NARRATIVE: CASE EVENT DATE: 20231101
